FAERS Safety Report 6237555-0 (Version None)
Quarter: 2009Q2

REPORT INFORMATION
  Report Type: 
  Country: None (occurrence: None)
  Receive Date: 20090617
  Receipt Date: 20090604
  Transmission Date: 20091009
  Serious: Yes (Other)
  Sender: FDA-Public Use
  Company Number: 230257M09USA

PATIENT
  Sex: Female

DRUGS (1)
  1. REBIF [Suspect]
     Indication: MULTIPLE SCLEROSIS

REACTIONS (4)
  - INJECTION SITE MASS [None]
  - INJECTION SITE RASH [None]
  - PURULENT DISCHARGE [None]
  - SYSTEMIC LUPUS ERYTHEMATOSUS RASH [None]
